FAERS Safety Report 8491762-5 (Version None)
Quarter: 2012Q3

REPORT INFORMATION
  Report Type: 
  Country: None (occurrence: None)
  Receive Date: 20120706
  Receipt Date: 20120626
  Transmission Date: 20120928
  Serious: Yes (Other)
  Sender: FDA-Public Use
  Company Number: AU-JNJFOC-20120614307

PATIENT
  Age: 27 Year
  Sex: Female

DRUGS (1)
  1. FENTANYL-100 [Suspect]
     Indication: PRODUCT USED FOR UNKNOWN INDICATION
     Route: 050

REACTIONS (4)
  - INJECTION SITE ULCER [None]
  - DEPENDENCE [None]
  - DRUG ABUSE [None]
  - INTENTIONAL DRUG MISUSE [None]
